FAERS Safety Report 20479547 (Version 2)
Quarter: 2022Q2

REPORT INFORMATION
  Report Type: Spontaneous
  Country: JP (occurrence: JP)
  Receive Date: 20220216
  Receipt Date: 20220520
  Transmission Date: 20220720
  Serious: No
  Sender: FDA-Public Use
  Company Number: JP-ELI_LILLY_AND_COMPANY-JP202202002830

PATIENT
  Age: 57 Year
  Sex: Male
  Weight: 63 kg

DRUGS (5)
  1. CYRAMZA [Suspect]
     Active Substance: RAMUCIRUMAB
     Indication: Non-small cell lung cancer stage IIIB
     Dosage: 10 MG/KG, CYCLICAL
     Route: 041
     Dates: start: 20210322, end: 20210929
  2. DOCETAXEL [Suspect]
     Active Substance: DOCETAXEL
     Indication: Non-small cell lung cancer stage IIIB
     Dosage: 60 MG/M2, CYCLICAL
     Route: 041
     Dates: start: 20210322, end: 20210929
  3. MS CONTIN [Concomitant]
     Active Substance: MORPHINE SULFATE
     Indication: Pain
     Dosage: 20 MG
     Dates: start: 20210816, end: 20220411
  4. MS CONTIN [Concomitant]
     Active Substance: MORPHINE SULFATE
     Indication: Dyspnoea
  5. SYMPROIC [Concomitant]
     Active Substance: NALDEMEDINE
     Indication: Constipation
     Dosage: 0.2 MG
     Route: 048
     Dates: start: 20210816, end: 20220411

REACTIONS (1)
  - Pneumonitis [Recovering/Resolving]

NARRATIVE: CASE EVENT DATE: 20211117
